FAERS Safety Report 9265247 (Version 2)
Quarter: 2013Q3

REPORT INFORMATION
  Report Type: Spontaneous
  Country: BR (occurrence: BR)
  Receive Date: 20130501
  Receipt Date: 20130709
  Transmission Date: 20140515
  Serious: Yes (Other)
  Sender: FDA-Public Use
  Company Number: BR-ASTRAZENECA-2013SE28739

PATIENT
  Age: 79 Year
  Sex: Male
  Weight: 94 kg

DRUGS (1)
  1. SYMBICORT TURBUHALER [Suspect]
     Indication: OXYGEN SATURATION DECREASED
     Dosage: 320/9 MCG TWO TIMES DAILY
     Route: 055
     Dates: start: 2003

REACTIONS (2)
  - Nephropathy [Recovering/Resolving]
  - Carpal tunnel syndrome [Recovering/Resolving]
